FAERS Safety Report 4591597-X (Version None)
Quarter: 2005Q1

REPORT INFORMATION
  Report Type: 
  Country: None (occurrence: None)
  Receive Date: 20050225
  Receipt Date: 20050209
  Transmission Date: 20050727
  Serious: Yes (Other)
  Sender: FDA-Public Use
  Company Number: US-JNJFOC-20040900655

PATIENT
  Sex: Female
  Weight: 68.04 kg

DRUGS (31)
  1. REMICADE [Suspect]
     Route: 042
  2. REMICADE [Suspect]
     Indication: CROHN'S DISEASE
     Route: 042
  3. KUTRASE [Concomitant]
  4. KUTRASE [Concomitant]
  5. KUTRASE [Concomitant]
  6. KUTRASE [Concomitant]
  7. KUTRASE [Concomitant]
  8. KUTRASE [Concomitant]
  9. ALDACTONE [Concomitant]
  10. SYNTHROID [Concomitant]
  11. COZAAR [Concomitant]
  12. HYDRODIURIL [Concomitant]
  13. PREMARIN [Concomitant]
  14. PROTONIX [Concomitant]
  15. ASPIRIN [Concomitant]
  16. VITAMIN E [Concomitant]
  17. MULTI-VITAMIN [Concomitant]
  18. MULTI-VITAMIN [Concomitant]
  19. MULTI-VITAMIN [Concomitant]
  20. MULTI-VITAMIN [Concomitant]
  21. MULTI-VITAMIN [Concomitant]
  22. MULTI-VITAMIN [Concomitant]
  23. MULTI-VITAMIN [Concomitant]
  24. MULTI-VITAMIN [Concomitant]
  25. FOLIC ACID [Concomitant]
  26. VITAMIN C [Concomitant]
  27. ALEVE [Concomitant]
  28. FEOSOL [Concomitant]
  29. MYLICON [Concomitant]
  30. OSCAL WITH VITAMIN D [Concomitant]
  31. OSCAL WITH VITAMIN D [Concomitant]

REACTIONS (3)
  - ANAEMIA [None]
  - INTESTINAL OPERATION [None]
  - SERUM FERRITIN DECREASED [None]
